FAERS Safety Report 4302291-4 (Version None)
Quarter: 2004Q1

REPORT INFORMATION
  Report Type: 
  Country: None (occurrence: None)
  Receive Date: 20040223
  Receipt Date: 20040213
  Transmission Date: 20041129
  Serious: Yes (Hospitalization, Disabling)
  Sender: FDA-Public Use
  Company Number: WAES 0402USA01202

PATIENT
  Age: 43 Year
  Sex: Female

DRUGS (7)
  1. FAMOTIDINE [Concomitant]
     Indication: GASTRITIS HAEMORRHAGIC
     Dates: end: 20031001
  2. SINGULAIR [Suspect]
     Indication: ASTHMA
     Route: 048
     Dates: start: 20030826, end: 20031001
  3. SINGULAIR [Suspect]
     Route: 048
     Dates: start: 20031113, end: 20031201
  4. PREDNISOLONE [Concomitant]
     Indication: VASCULITIS
     Dates: start: 20030701, end: 20031001
  5. PREDNISOLONE [Concomitant]
     Dates: start: 20031001
  6. RISEDRONATE SODIUM [Concomitant]
     Indication: OSTEOPOROSIS
     Dates: start: 20030801, end: 20031001
  7. THEOPHYLLINE [Concomitant]
     Indication: ASTHMA
     Dates: start: 20030801, end: 20031001

REACTIONS (3)
  - ALLERGIC GRANULOMATOUS ANGIITIS [None]
  - EOSINOPHILIC PNEUMONIA [None]
  - PNEUMONIA BACTERIAL [None]
